FAERS Safety Report 24538662 (Version 1)
Quarter: 2024Q4

REPORT INFORMATION
  Report Type: Spontaneous
  Country: US (occurrence: US)
  Receive Date: 20241023
  Receipt Date: 20241023
  Transmission Date: 20250115
  Serious: Yes (Other)
  Sender: TEVA
  Company Number: US-TEVA-VS-3251057

PATIENT
  Age: 19 Year
  Sex: Male

DRUGS (2)
  1. UZEDY [Suspect]
     Active Substance: RISPERIDONE
     Indication: Schizophrenia
     Dosage: STRENGTH:250/0.7 MG/ML
     Route: 065
     Dates: start: 20240717
  2. UZEDY [Suspect]
     Active Substance: RISPERIDONE
     Dosage: STRENGTH:150/0.42 MG/ML
     Route: 030

REACTIONS (6)
  - Facial paralysis [Recovered/Resolved]
  - Off label use [Unknown]
  - Tremor [Recovered/Resolved]
  - Dysstasia [Recovered/Resolved]
  - Dyskinesia [Recovered/Resolved]
  - Fall [Recovered/Resolved]

NARRATIVE: CASE EVENT DATE: 20240715
